FAERS Safety Report 5057801-9 (Version None)
Quarter: 2006Q3

REPORT INFORMATION
  Report Type: 
  Country: None (occurrence: None)
  Receive Date: 20060721
  Receipt Date: 20060222
  Transmission Date: 20061208
  Serious: No
  Sender: FDA-Public Use
  Company Number: US-GLAXOSMITHKLINE-A0594810A

PATIENT
  Age: 77 Year
  Sex: Female

DRUGS (8)
  1. AVANDIA [Suspect]
     Dosage: 2MCG TWICE PER DAY
     Route: 048
     Dates: start: 20060119, end: 20060209
  2. GLIBURIDE [Concomitant]
  3. METFORMIN [Concomitant]
  4. NIFEDIPINE [Concomitant]
     Route: 048
  5. PROTONIX [Concomitant]
  6. SYNTHROID [Concomitant]
  7. LOVASTATIN [Concomitant]
  8. ACTOS [Concomitant]

REACTIONS (2)
  - EYE SWELLING [None]
  - OEDEMA PERIPHERAL [None]
